FAERS Safety Report 4848471-0 (Version None)
Quarter: 2005Q4

REPORT INFORMATION
  Report Type: 
  Country: None (occurrence: None)
  Receive Date: 20051208
  Receipt Date: 20050905
  Transmission Date: 20060501
  Serious: Yes (Death, Life-Threatening)
  Sender: FDA-Public Use
  Company Number: JP-AVENTIS-200512549JP

PATIENT
  Age: 52 Year
  Sex: Male
  Weight: 101.65 kg

DRUGS (9)
  1. TAXOTERE [Suspect]
     Indication: SQUAMOUS CELL CARCINOMA
     Route: 041
     Dates: start: 20040913, end: 20041004
  2. KADIAN [Concomitant]
     Indication: CANCER PAIN
     Route: 048
     Dates: start: 20040902, end: 20041010
  3. GRAN [Concomitant]
     Indication: WHITE BLOOD CELL COUNT DECREASED
     Route: 058
     Dates: start: 20041008, end: 20041010
  4. ALBUMIN (HUMAN) [Concomitant]
     Indication: HYPOPROTEINAEMIA
     Route: 042
     Dates: start: 20041004, end: 20041005
  5. PLATELETS [Concomitant]
     Indication: BONE MARROW FAILURE
     Route: 042
     Dates: start: 20041009, end: 20041017
  6. DECADRON [Concomitant]
     Dates: start: 20040913, end: 20041004
  7. ZANTAC [Concomitant]
     Dosage: DOSE: 1 AMPULE
     Dates: start: 20040913, end: 20041004
  8. CHLOR-TRIMETON [Concomitant]
     Dosage: DOSE: 1 AMPULE
     Dates: start: 20040913, end: 20041004
  9. SEROTONE [Concomitant]
     Indication: SQUAMOUS CELL CARCINOMA
     Dosage: DOSE: 1AMPULE
     Dates: start: 20040913, end: 20041004

REACTIONS (11)
  - ALANINE AMINOTRANSFERASE INCREASED [None]
  - ASPARTATE AMINOTRANSFERASE INCREASED [None]
  - BLOOD BILIRUBIN DECREASED [None]
  - BLOOD PRESSURE DECREASED [None]
  - BONE MARROW FAILURE [None]
  - DISSEMINATED INTRAVASCULAR COAGULATION [None]
  - HEPATIC FUNCTION ABNORMAL [None]
  - HYPOPROTEINAEMIA [None]
  - METASTASES TO LYMPH NODES [None]
  - RENAL IMPAIRMENT [None]
  - RESPIRATORY FAILURE [None]
